FAERS Safety Report 6648503-3 (Version None)
Quarter: 2010Q1

REPORT INFORMATION
  Report Type: 
  Country: None (occurrence: None)
  Receive Date: 20100319
  Receipt Date: 20100308
  Transmission Date: 20100710
  Serious: Yes (Other)
  Sender: FDA-Public Use
  Company Number: US-1180981

PATIENT
  Age: 23 Year
  Sex: Female
  Weight: 49.8957 kg

DRUGS (4)
  1. NEVANAC [Suspect]
     Indication: PHOTOREFRACTIVE KERATECTOMY
     Dosage: QID OPHTHALMIC
     Route: 047
     Dates: start: 20100119, end: 20100125
  2. OMNIPRED [Concomitant]
  3. VIGAMOX [Concomitant]
  4. SYSTANE [Concomitant]

REACTIONS (7)
  - CORNEAL OPACITY [None]
  - EYE PAIN [None]
  - IMPAIRED HEALING [None]
  - KERATITIS [None]
  - OCULAR DISCOMFORT [None]
  - PHOTOPHOBIA [None]
  - VISUAL ACUITY REDUCED [None]
